FAERS Safety Report 9238952 (Version 1)
Quarter: 2013Q2

REPORT INFORMATION
  Report Type: Spontaneous
  Country: US (occurrence: US)
  Receive Date: 20130418
  Receipt Date: 20130418
  Transmission Date: 20140414
  Serious: Yes (Life-Threatening, Hospitalization)
  Sender: FDA-Public Use
  Company Number: PHHY2013US037196

PATIENT
  Age: 14 Year
  Sex: Female

DRUGS (2)
  1. LAMOTRIGINE [Suspect]
     Indication: BIPOLAR DISORDER
  2. BUPROPION [Suspect]
     Indication: BIPOLAR DISORDER

REACTIONS (27)
  - Drug reaction with eosinophilia and systemic symptoms [Recovering/Resolving]
  - Rash erythematous [Recovered/Resolved]
  - Pyrexia [Recovered/Resolved]
  - Lymphadenopathy [Recovered/Resolved]
  - Lymphadenitis [Recovered/Resolved]
  - Rash [Recovered/Resolved]
  - Pharyngitis [Recovered/Resolved]
  - Oropharyngeal pain [Recovered/Resolved]
  - Glossitis [Recovered/Resolved]
  - Eosinophilia [Recovered/Resolved]
  - Transaminases increased [Recovered/Resolved]
  - Lymphocyte morphology abnormal [Recovered/Resolved]
  - Pain [Recovered/Resolved]
  - Hepatitis [Recovered/Resolved]
  - Fluid overload [Recovered/Resolved]
  - Anaemia [Recovered/Resolved]
  - Pancreatitis [Recovered/Resolved]
  - Thyroiditis [Recovering/Resolving]
  - Tubulointerstitial nephritis [Recovered/Resolved]
  - Respiratory distress [Recovered/Resolved]
  - Hypoxia [Recovered/Resolved]
  - Torsade de pointes [Recovered/Resolved]
  - Electrocardiogram QT prolonged [Recovered/Resolved]
  - Hypothyroidism [Recovering/Resolving]
  - Renal failure acute [Recovered/Resolved]
  - Respiratory failure [Recovered/Resolved]
  - Cardiac arrest [Recovered/Resolved]
